FAERS Safety Report 20316277 (Version 1)
Quarter: 2022Q1

REPORT INFORMATION
  Report Type: Spontaneous
  Country: US (occurrence: US)
  Receive Date: 20220110
  Receipt Date: 20220110
  Transmission Date: 20220423
  Serious: No
  Sender: FDA-Public Use
  Company Number: US-SANOFI-00918934

PATIENT
  Age: 54 Year
  Sex: Female

DRUGS (1)
  1. FABRAZYME [Suspect]
     Active Substance: AGALSIDASE BETA
     Indication: Fabry^s disease
     Dosage: UNK, QOW
     Route: 042
     Dates: start: 20211223

REACTIONS (5)
  - COVID-19 [Recovering/Resolving]
  - SARS-CoV-2 test positive [Recovering/Resolving]
  - Throat irritation [Recovering/Resolving]
  - Hyperhidrosis [Recovering/Resolving]
  - Cough [Recovering/Resolving]
